FAERS Safety Report 16966930 (Version 1)
Quarter: 2019Q4

REPORT INFORMATION
  Report Type: Spontaneous
  Country: US (occurrence: US)
  Receive Date: 20191028
  Receipt Date: 20191028
  Transmission Date: 20200122
  Serious: No
  Sender: FDA-Public Use
  Company Number: US-SA-2019SA298631

PATIENT
  Age: 77 Year
  Sex: Male

DRUGS (2)
  1. PRALUENT [Suspect]
     Active Substance: ALIROCUMAB
     Dosage: 75 UNK
     Dates: start: 201908
  2. PRALUENT [Suspect]
     Active Substance: ALIROCUMAB
     Indication: BLOOD CHOLESTEROL
     Dosage: 75 MG, QOW
     Dates: start: 2018, end: 2019

REACTIONS (5)
  - Product use issue [Unknown]
  - Back pain [Unknown]
  - Arthralgia [Unknown]
  - Condition aggravated [Unknown]
  - Spinal operation [Unknown]

NARRATIVE: CASE EVENT DATE: 201909
